FAERS Safety Report 15659606 (Version 1)
Quarter: 2018Q4

REPORT INFORMATION
  Report Type: Report from Study
  Country: ES (occurrence: ES)
  Receive Date: 20181127
  Receipt Date: 20181127
  Transmission Date: 20190205
  Serious: Yes (Other)
  Sender: FDA-Public Use
  Company Number: ES-TEVA-2018-ES-978466

PATIENT
  Sex: Female

DRUGS (1)
  1. COPAXONE [Suspect]
     Active Substance: GLATIRAMER ACETATE
     Indication: MULTIPLE SCLEROSIS
     Route: 058
     Dates: start: 20160111

REACTIONS (7)
  - Choking [Recovered/Resolved]
  - Immediate post-injection reaction [Recovered/Resolved]
  - Nasopharyngitis [Recovered/Resolved]
  - Chills [Recovered/Resolved]
  - Tachycardia [Recovered/Resolved]
  - Erythema [Recovered/Resolved]
  - Cyanosis [Recovered/Resolved]

NARRATIVE: CASE EVENT DATE: 2018
